FAERS Safety Report 10172844 (Version 2)
Quarter: 2014Q2

REPORT INFORMATION
  Report Type: Spontaneous
  Country: DE (occurrence: DE)
  Receive Date: 20140515
  Receipt Date: 20140515
  Transmission Date: 20141212
  Serious: Yes (Other)
  Sender: FDA-Public Use
  Company Number: DE-ROCHE-1391408

PATIENT
  Age: 52 Year
  Sex: Female
  Weight: 90 kg

DRUGS (5)
  1. MABTHERA [Suspect]
     Indication: WALDENSTROM^S MACROGLOBULINAEMIA
     Route: 042
     Dates: start: 20140305, end: 20140326
  2. BENDAMUSTINA [Concomitant]
     Indication: WALDENSTROM^S MACROGLOBULINAEMIA
     Route: 042
     Dates: start: 20140306
  3. FENISTIL (GERMANY) [Concomitant]
     Indication: PREMEDICATION
     Route: 065
     Dates: start: 20140305, end: 20140326
  4. DECORTIN [Concomitant]
     Indication: PREMEDICATION
     Route: 042
     Dates: start: 20140305, end: 20140326
  5. PARACETAMOL [Concomitant]
     Indication: PREMEDICATION
     Route: 048
     Dates: start: 20140305, end: 20140326

REACTIONS (3)
  - Joint swelling [Recovered/Resolved]
  - Pyrexia [Recovered/Resolved]
  - Rash [Recovered/Resolved]
